FAERS Safety Report 6957971-9 (Version None)
Quarter: 2010Q3

REPORT INFORMATION
  Report Type: 
  Country: None (occurrence: None)
  Receive Date: 20100831
  Receipt Date: 20100825
  Transmission Date: 20110219
  Serious: Yes (Other)
  Sender: FDA-Public Use
  Company Number: US-RB-014512-10

PATIENT
  Age: 31 Year
  Sex: Female

DRUGS (5)
  1. SUBOXONE [Suspect]
     Indication: DRUG DEPENDENCE
     Route: 060
     Dates: start: 20100528
  2. TRAMADOL HCL [Suspect]
     Indication: PAIN
     Dosage: ONE CHEWED AS NEEDED, EXACT DOSE UNKNOWN
     Route: 048
     Dates: start: 20090101
  3. LUNESTA [Suspect]
     Indication: INSOMNIA
     Dosage: NIGHTLY-EXACT DOSE UNKNOWN
     Route: 065
     Dates: start: 20090101, end: 20100601
  4. TEMAZEPAM [Suspect]
     Indication: INSOMNIA
     Dosage: NIGHTLY-EXACT DOSE UNKNOWN
     Route: 065
     Dates: start: 20100601
  5. NUVIGIL [Concomitant]
     Indication: NARCOLEPSY
     Dosage: AS NEEDED-EXACT DOSE UNKNOWN
     Route: 065
     Dates: start: 20090101

REACTIONS (3)
  - CONVULSION [None]
  - HEAD INJURY [None]
  - LOSS OF CONSCIOUSNESS [None]
